FAERS Safety Report 19011788 (Version 1)
Quarter: 2021Q1

REPORT INFORMATION
  Report Type: Spontaneous
  Country: US (occurrence: US)
  Receive Date: 20210316
  Receipt Date: 20210316
  Transmission Date: 20210420
  Serious: Yes (Hospitalization, Other)
  Sender: FDA-Public Use
  Company Number: US-GLAXOSMITHKLINE-US2021AMR060273

PATIENT
  Sex: Female

DRUGS (1)
  1. ALBUTEROL SULFATE. [Suspect]
     Active Substance: ALBUTEROL SULFATE
     Indication: PRODUCT USED FOR UNKNOWN INDICATION
     Dosage: UNK

REACTIONS (7)
  - Product substitution issue [Unknown]
  - Hospitalisation [Unknown]
  - Feeling abnormal [Unknown]
  - Blood pressure increased [Unknown]
  - Transient ischaemic attack [Unknown]
  - Adverse drug reaction [Unknown]
  - Anxiety [Unknown]
